FAERS Safety Report 14187039 (Version 2)
Quarter: 2018Q2

REPORT INFORMATION
  Report Type: Spontaneous
  Country: US (occurrence: US)
  Receive Date: 20171114
  Receipt Date: 20180403
  Transmission Date: 20180711
  Serious: No
  Sender: FDA-Public Use
  Company Number: US-PFIZER INC-2017473288

PATIENT
  Age: 78 Year
  Sex: Female

DRUGS (1)
  1. IBRANCE [Suspect]
     Active Substance: PALBOCICLIB
     Dosage: UNK

REACTIONS (8)
  - Lacrimation increased [Unknown]
  - Dry eye [Unknown]
  - Irritability [Unknown]
  - Skin atrophy [Unknown]
  - Sleep disorder [Unknown]
  - Weight increased [Unknown]
  - Increased appetite [Unknown]
  - Contusion [Unknown]
